FAERS Safety Report 6101756-2 (Version None)
Quarter: 2009Q1

REPORT INFORMATION
  Report Type: 
  Country: None (occurrence: None)
  Receive Date: 20090304
  Receipt Date: 20090227
  Transmission Date: 20090719
  Serious: Yes (Death)
  Sender: FDA-Public Use
  Company Number: B0562808A

PATIENT
  Age: 68 Year
  Sex: Female

DRUGS (1)
  1. ARIXTRA [Suspect]
     Indication: THROMBOSIS PROPHYLAXIS
     Route: 065
     Dates: start: 20081019

REACTIONS (4)
  - ARTHRITIS INFECTIVE [None]
  - CORONARY ARTERY THROMBOSIS [None]
  - JOINT SWELLING [None]
  - PULMONARY EMBOLISM [None]
